FAERS Safety Report 24740279 (Version 2)
Quarter: 2025Q1

REPORT INFORMATION
  Report Type: Report from Study
  Country: CA (occurrence: CA)
  Receive Date: 20241216
  Receipt Date: 20250207
  Transmission Date: 20250408
  Serious: Yes (Other)
  Sender: AMGEN
  Company Number: CA-AMGEN-CANSL2024212016

PATIENT
  Age: 60 Year
  Sex: Male
  Weight: 107 kg

DRUGS (3)
  1. MVASI [Suspect]
     Active Substance: BEVACIZUMAB-AWWB
     Indication: Glioblastoma multiforme
     Dosage: 1008  MILLIGRAM, Q2WK (11X100MG)
     Route: 065
     Dates: start: 20241004
  2. MVASI [Suspect]
     Active Substance: BEVACIZUMAB-AWWB
     Route: 065
  3. MVASI [Suspect]
     Active Substance: BEVACIZUMAB-AWWB
     Route: 065

REACTIONS (4)
  - Adverse reaction [Unknown]
  - Platelet count decreased [Not Recovered/Not Resolved]
  - Influenza [Recovered/Resolved]
  - Tremor [Recovering/Resolving]

NARRATIVE: CASE EVENT DATE: 20241114
